FAERS Safety Report 8053423-6 (Version None)
Quarter: 2012Q1

REPORT INFORMATION
  Report Type: 
  Country: None (occurrence: None)
  Receive Date: 20120118
  Receipt Date: 20120113
  Transmission Date: 20120608
  Serious: Yes (Other)
  Sender: FDA-Public Use
  Company Number: US-GLAXOSMITHKLINE-A0961405A

PATIENT
  Age: 33 Year
  Sex: Female

DRUGS (4)
  1. SINGULAIR [Concomitant]
  2. ADVAIR DISKUS 100/50 [Suspect]
     Indication: ASTHMA
     Dosage: 1PUFF PER DAY
     Route: 055
     Dates: start: 19990101, end: 20110901
  3. SEREVENT [Suspect]
     Indication: ASTHMA
     Dosage: 1PUFF TWICE PER DAY
     Route: 055
     Dates: start: 20110901
  4. RYNATUSS [Concomitant]

REACTIONS (7)
  - WHEEZING [None]
  - ASTHMA [None]
  - RHINORRHOEA [None]
  - COUGH [None]
  - DRUG HYPERSENSITIVITY [None]
  - DRUG INEFFECTIVE [None]
  - MIGRAINE [None]
